FAERS Safety Report 20167880 (Version 2)
Quarter: 2022Q3

REPORT INFORMATION
  Report Type: Report from Study
  Country: MX (occurrence: MX)
  Receive Date: 20211210
  Receipt Date: 20220805
  Transmission Date: 20221026
  Serious: Yes (Hospitalization)
  Sender: FDA-Public Use
  Company Number: MX-NOVARTISPH-NVSC2021MX281372

PATIENT
  Sex: Female
  Weight: 60 kg

DRUGS (6)
  1. ENTRESTO [Suspect]
     Active Substance: SACUBITRIL\VALSARTAN
     Indication: Hypertension
     Dosage: 1 DOSAGE FORM (50 MG), QD, STARTED ABOUT 3 YEARS AGO
     Route: 048
  2. ENTRESTO [Suspect]
     Active Substance: SACUBITRIL\VALSARTAN
     Indication: Arrhythmia
     Dosage: 0.5 DOSAGE FORM (50 MG), QD
     Route: 048
  3. ENTRESTO [Suspect]
     Active Substance: SACUBITRIL\VALSARTAN
     Dosage: 1 DOSAGE FORM, BID (EVERY 12 HOURS, BEFORE THE PANDEMIC)
     Route: 048
  4. ENTRESTO [Suspect]
     Active Substance: SACUBITRIL\VALSARTAN
     Dosage: 1 DOSAGE FORM (ORAL)
     Route: 048
  5. LOSARTAN [Concomitant]
     Active Substance: LOSARTAN
     Indication: Hypertension
     Dosage: 1 DOSAGE FORM, BID (50 MG), EVERY 12 HOURS
     Route: 048
  6. LOSARTAN [Concomitant]
     Active Substance: LOSARTAN
     Indication: Arrhythmia
     Dosage: 1 DOSAGE FORM, DAILY
     Route: 048

REACTIONS (9)
  - Gastrointestinal haemorrhage [Recovered/Resolved]
  - Hypotension [Not Recovered/Not Resolved]
  - Haemoglobin decreased [Unknown]
  - Hypertension [Not Recovered/Not Resolved]
  - Product availability issue [Unknown]
  - Prescribed underdose [Unknown]
  - Product use in unapproved indication [Unknown]
  - Inappropriate schedule of product administration [Unknown]
  - Wrong technique in product usage process [Unknown]

NARRATIVE: CASE EVENT DATE: 20210101
